FAERS Safety Report 20362245 (Version 2)
Quarter: 2022Q1

REPORT INFORMATION
  Report Type: Spontaneous
  Country: JP (occurrence: JP)
  Receive Date: 20220121
  Receipt Date: 20220201
  Transmission Date: 20220423
  Serious: No
  Sender: FDA-Public Use
  Company Number: JP-GLAXOSMITHKLINE-JP2022JPN007524

PATIENT
  Age: 63 Year
  Sex: Male

DRUGS (3)
  1. SOTROVIMAB [Suspect]
     Active Substance: SOTROVIMAB
     Indication: COVID-19
     Dosage: 500MG/100ML/30MIN, QD
     Route: 041
     Dates: start: 20220109, end: 20220109
  2. TRULICITY SUBCUTANEOUS INJECTION [Concomitant]
     Indication: Type 2 diabetes mellitus
     Dosage: 0.75 MG
  3. GLIMEPIRIDE [Concomitant]
     Active Substance: GLIMEPIRIDE
     Indication: Type 2 diabetes mellitus
     Dosage: UNK

REACTIONS (3)
  - Urticaria [Recovered/Resolved]
  - Face oedema [Recovered/Resolved]
  - Infusion related reaction [Recovered/Resolved]

NARRATIVE: CASE EVENT DATE: 20220109
